FAERS Safety Report 23388750 (Version 1)
Quarter: 2024Q1

REPORT INFORMATION
  Report Type: Spontaneous
  Country: US (occurrence: None)
  Receive Date: 20240110
  Receipt Date: 20240110
  Transmission Date: 20240410
  Serious: No
  Sender: FDA-Public Use
  Company Number: None

PATIENT
  Age: 51 Year
  Sex: Female
  Weight: 96.62 kg

DRUGS (2)
  1. TALTZ [Suspect]
     Active Substance: IXEKIZUMAB
     Indication: Psoriatic arthropathy
     Dosage: FREQUENCY : MONTHLY;?
     Route: 058
     Dates: start: 202401
  2. TALTZ [Suspect]
     Active Substance: IXEKIZUMAB
     Indication: Osteoarthritis

REACTIONS (4)
  - Intentional dose omission [None]
  - Malaise [None]
  - Viral infection [None]
  - Sinusitis [None]
